FAERS Safety Report 7966941-3 (Version None)
Quarter: 2011Q4

REPORT INFORMATION
  Report Type: 
  Country: None (occurrence: None)
  Receive Date: 20111209
  Receipt Date: 20111201
  Transmission Date: 20120403
  Serious: Yes (Hospitalization)
  Sender: FDA-Public Use
  Company Number: FR-PFIZER INC-2011296018

PATIENT
  Age: 77 Year
  Sex: Male

DRUGS (11)
  1. PAROXETINE HCL [Suspect]
     Indication: DEPRESSION
     Dosage: 1 DF, 1X/DAY
     Route: 048
     Dates: start: 20110901, end: 20110927
  2. ATORVASTATIN CALCIUM [Concomitant]
  3. PANTOPRAZOLE [Suspect]
     Dosage: 20 MG, 1X/DAY
     Route: 048
     Dates: start: 20110529
  4. ACETAMINOPHEN [Concomitant]
  5. URBANYL [Suspect]
     Indication: CONVULSION
     Dosage: 5 MG, DAILY
     Route: 048
     Dates: start: 20110916, end: 20111009
  6. ASPIRIN [Concomitant]
  7. IMOVANE [Concomitant]
  8. TRANSIPEG [Concomitant]
  9. SINEMET [Concomitant]
  10. TRILEPTAL [Suspect]
     Indication: CONVULSION
     Dosage: 300 MG, 2X/DAY
     Route: 048
     Dates: start: 20110917, end: 20111014
  11. DEDROGYL [Concomitant]

REACTIONS (3)
  - HYPONATRAEMIA [None]
  - CONFUSIONAL STATE [None]
  - SOMNOLENCE [None]
